FAERS Safety Report 8337613-0 (Version None)
Quarter: 2012Q2

REPORT INFORMATION
  Report Type: 
  Country: None (occurrence: None)
  Receive Date: 20120504
  Receipt Date: 20110830
  Transmission Date: 20120825
  Serious: No
  Sender: FDA-Public Use
  Company Number: US-TEVA-2011004945

PATIENT

DRUGS (2)
  1. NUVIGIL [Suspect]
     Route: 045
  2. PROVIGIL [Suspect]
     Route: 045

REACTIONS (1)
  - INTENTIONAL DRUG MISUSE [None]
